FAERS Safety Report 12991072 (Version 1)
Quarter: 2016Q4

REPORT INFORMATION
  Report Type: Report from Study
  Country: DE (occurrence: DE)
  Receive Date: 20161201
  Receipt Date: 20161201
  Transmission Date: 20170207
  Serious: Yes (Life-Threatening, Hospitalization)
  Sender: FDA-Public Use
  Company Number: DE-TEVA-715294GER

PATIENT
  Age: 62 Year
  Sex: Female

DRUGS (21)
  1. RITUXIMAB [Suspect]
     Active Substance: RITUXIMAB
     Indication: B-CELL LYMPHOMA
     Dosage: 13-JUN-2013: MOST RECENT DOSE 500 ML (1.32MG/ML) PRIOR TO SAE
     Route: 042
     Dates: start: 20130523
  2. CYCLOPHOSPHAMID [Suspect]
     Active Substance: CYCLOPHOSPHAMIDE
     Indication: B-CELL LYMPHOMA
     Dosage: DATE OF MOST RECENT DOSES PRIOR TO SAE 24-MAY-2013
     Route: 042
     Dates: start: 20130524
  3. COTRIMOXAZOL [Concomitant]
     Active Substance: SULFAMETHOXAZOLE\TRIMETHOPRIM
     Indication: URINARY TRACT INFECTION
     Dates: start: 20130520, end: 20130707
  4. CLEXANE [Concomitant]
     Active Substance: ENOXAPARIN SODIUM
     Indication: THROMBOSIS PROPHYLAXIS
     Dates: start: 20130613, end: 20130617
  5. VINCRISTINE [Suspect]
     Active Substance: VINCRISTINE
     Indication: B-CELL LYMPHOMA
     Dosage: LAST DOSE PRIOR TO SAE: 24-MAY-2013
     Route: 040
     Dates: start: 20130524
  6. ASPIRIN. [Concomitant]
     Active Substance: ASPIRIN
     Indication: ATRIAL FIBRILLATION
  7. NOVALGIN [Concomitant]
     Active Substance: METAMIZOLE SODIUM
     Indication: PAIN
  8. DECORTIN [Concomitant]
     Active Substance: PREDNISONE
     Indication: PROPHYLAXIS
     Dates: start: 20130524, end: 20130528
  9. DOXORUBICIN [Suspect]
     Active Substance: DOXORUBICIN
     Indication: B-CELL LYMPHOMA
     Dosage: LAST DOSE PRIOR TO SAE: 24-MAY-2013
     Route: 042
     Dates: start: 20130524
  10. PREDNISONE. [Suspect]
     Active Substance: PREDNISONE
     Indication: B-CELL LYMPHOMA
     Dosage: LAST DOSE PRIOR TO SAE 28-MAY-2013
     Route: 048
     Dates: start: 20130524
  11. PARACETAMOL [Concomitant]
     Active Substance: ACETAMINOPHEN
     Indication: PREMEDICATION
     Dates: start: 20130523, end: 20130523
  12. FORMOTEROL [Concomitant]
     Active Substance: FORMOTEROL
     Indication: CHRONIC OBSTRUCTIVE PULMONARY DISEASE
  13. TAVEGIL [Concomitant]
     Active Substance: CLEMASTINE FUMARATE
     Indication: PREMEDICATION
     Dates: start: 20130523, end: 20130523
  14. TAVEGIL [Concomitant]
     Active Substance: CLEMASTINE FUMARATE
     Dates: start: 20130613, end: 20130613
  15. DECORTIN [Concomitant]
     Active Substance: PREDNISONE
     Dates: start: 20130613, end: 20130613
  16. ZYLORIC [Concomitant]
     Active Substance: ALLOPURINOL
     Indication: PROPHYLAXIS
     Dates: start: 20130517
  17. MCP (METOCLOPRAMIDE) [Concomitant]
     Indication: VOMITING
     Dates: start: 20130603, end: 20140108
  18. DECORTIN [Concomitant]
     Active Substance: PREDNISONE
     Indication: PREMEDICATION
     Dates: start: 20130523, end: 20130523
  19. GRANOCYTE [Concomitant]
     Active Substance: LENOGRASTIM
     Indication: NEUTROPENIA
     Dates: start: 20130603, end: 20130608
  20. PANTOPRAZOL [Concomitant]
     Active Substance: PANTOPRAZOLE SODIUM
     Indication: PROPHYLAXIS
  21. DULCOLAX NOS [Concomitant]
     Active Substance: BISACODYL OR DOCUSATE SODIUM
     Indication: CONSTIPATION
     Dates: start: 20130603, end: 20130604

REACTIONS (1)
  - Leukopenia [Recovered/Resolved]

NARRATIVE: CASE EVENT DATE: 20130531
